FAERS Safety Report 8169088-9 (Version None)
Quarter: 2012Q1

REPORT INFORMATION
  Report Type: 
  Country: None (occurrence: None)
  Receive Date: 20120227
  Receipt Date: 20120221
  Transmission Date: 20120608
  Serious: Yes (Hospitalization)
  Sender: FDA-Public Use
  Company Number: FR-B.I. PHARMACEUTICALS,INC./RIDGEFIELD-2012-FF-00220FF

PATIENT
  Sex: Male
  Weight: 115 kg

DRUGS (12)
  1. PERMIXON [Concomitant]
     Indication: BENIGN PROSTATIC HYPERPLASIA
     Dosage: 160 MG
     Route: 048
  2. ASPIRIN [Concomitant]
     Indication: PROPHYLAXIS
     Dosage: 75 MG
     Route: 048
  3. ZOLPIDEM [Concomitant]
     Indication: INSOMNIA
     Route: 048
  4. ADENURIC [Concomitant]
     Indication: HYPERURICAEMIA
     Dosage: 80 MG
     Route: 048
     Dates: start: 20110301
  5. MOBIC [Suspect]
     Indication: BACK PAIN
     Dosage: 15 MG/1.5 ML
     Route: 030
     Dates: start: 20110501, end: 20110501
  6. GLUCOPHAGE [Concomitant]
     Indication: TYPE 2 DIABETES MELLITUS
     Route: 048
     Dates: end: 20110901
  7. LASIX [Concomitant]
     Indication: RENAL FAILURE CHRONIC
     Dosage: 125 MG
     Route: 048
  8. IRBESARTAN [Concomitant]
     Indication: HYPERTENSION
     Route: 048
     Dates: start: 20110301
  9. ACTOS [Concomitant]
     Indication: TYPE 2 DIABETES MELLITUS
     Route: 048
  10. LESCOL [Concomitant]
     Indication: HYPERCHOLESTEROLAEMIA
     Dosage: 80 MG
     Route: 048
  11. SECTRAL [Concomitant]
     Indication: ARRHYTHMIA
     Dosage: 200 MG
     Route: 048
  12. GALANTAMINE HYDROBROMIDE [Concomitant]
     Indication: DEMENTIA ALZHEIMER'S TYPE
     Dosage: 16 MG
     Route: 048

REACTIONS (1)
  - HYPERKALAEMIA [None]
